FAERS Safety Report 6484329-1 (Version None)
Quarter: 2009Q4

REPORT INFORMATION
  Report Type: 
  Country: None (occurrence: None)
  Receive Date: 20091203
  Receipt Date: 20091119
  Transmission Date: 20100525
  Serious: Yes (Other)
  Sender: FDA-Public Use
  Company Number: 2009US004153

PATIENT
  Age: 12 Year

DRUGS (1)
  1. AMBISOME [Suspect]
     Indication: FUNGAL INFECTION

REACTIONS (1)
  - ELECTROCARDIOGRAM QT PROLONGED [None]
